FAERS Safety Report 6110668-X (Version None)
Quarter: 2009Q1

REPORT INFORMATION
  Report Type: 
  Country: None (occurrence: None)
  Receive Date: 20090303
  Receipt Date: 20090218
  Transmission Date: 20090719
  Serious: Yes (Hospitalization)
  Sender: FDA-Public Use
  Company Number: WSDF_00527

PATIENT
  Age: 51 Year
  Sex: Female
  Weight: 72.7 kg

DRUGS (15)
  1. WINRHO SDF [Suspect]
     Indication: IDIOPATHIC THROMBOCYTOPENIC PURPURA
     Dosage: 10000 IU ONCE IV
     Route: 042
     Dates: start: 20060310, end: 20060310
  2. ACYCLOVIR [Concomitant]
  3. FOSAMPRENAVIR [Concomitant]
  4. ABACAVIR SULFATE [Concomitant]
  5. LAMIVUDINE [Concomitant]
  6. CALCIUM CARB [Concomitant]
  7. URSODIOL [Concomitant]
  8. CHOLESTYRAMINE [Concomitant]
  9. METHADONE HCL [Concomitant]
  10. DAPSONE [Concomitant]
  11. INSULIN [Concomitant]
  12. LACTULOSE [Concomitant]
  13. PANTOPRAZOLE SODIUM [Concomitant]
  14. LASIX [Concomitant]
  15. SPIRONOLACTONE [Concomitant]

REACTIONS (10)
  - BLOOD BILIRUBIN INCREASED [None]
  - BLOOD PRESSURE INCREASED [None]
  - BODY TEMPERATURE INCREASED [None]
  - CHILLS [None]
  - HAEMATOCRIT DECREASED [None]
  - HEADACHE [None]
  - INTRAVASCULAR HAEMOLYSIS [None]
  - RENAL FAILURE ACUTE [None]
  - RENAL TUBULAR NECROSIS [None]
  - TRANSFUSION REACTION [None]
